FAERS Safety Report 7367599-7 (Version None)
Quarter: 2011Q1

REPORT INFORMATION
  Report Type: 
  Country: None (occurrence: None)
  Receive Date: 20110322
  Receipt Date: 20110309
  Transmission Date: 20110831
  Serious: Yes (Other)
  Sender: FDA-Public Use
  Company Number: CH-JNJFOC-20100705161

PATIENT
  Age: 25 Year
  Sex: Male
  Weight: 82 kg

DRUGS (8)
  1. REMICADE [Suspect]
     Dosage: EVERY 6-8 WEEKS
     Route: 042
  2. REMICADE [Suspect]
     Route: 042
  3. REMICADE [Suspect]
     Indication: ARTHRITIS
     Route: 042
  4. REMICADE [Suspect]
     Route: 042
  5. REMICADE [Suspect]
     Route: 042
  6. REMICADE [Suspect]
     Route: 042
  7. REMICADE [Suspect]
     Dosage: EVERY 6-8 WEEKS
     Route: 042
  8. REMICADE [Suspect]
     Indication: ANKYLOSING SPONDYLITIS
     Route: 042

REACTIONS (3)
  - HEPATIC ENZYME INCREASED [None]
  - AUTOIMMUNE HEPATITIS [None]
  - SPLENOMEGALY [None]
